FAERS Safety Report 5718603-0 (Version None)
Quarter: 2008Q2

REPORT INFORMATION
  Report Type: 
  Country: None (occurrence: None)
  Receive Date: 20080425
  Receipt Date: 20080415
  Transmission Date: 20081010
  Serious: Yes (Other)
  Sender: FDA-Public Use
  Company Number: CA-PFIZER INC-2008022037

PATIENT
  Age: 42 Year
  Sex: Female

DRUGS (8)
  1. LYRICA [Suspect]
     Indication: NEURALGIA
     Route: 048
     Dates: start: 20071101, end: 20080101
  2. LYRICA [Suspect]
     Indication: SCIATICA
  3. ATENOLOL [Concomitant]
     Route: 048
  4. SYNTHROID [Concomitant]
     Route: 048
  5. HYDROMORPHONE HCL [Concomitant]
     Route: 048
  6. NAPROXEN [Concomitant]
     Route: 048
  7. PROZAC [Concomitant]
     Route: 048
  8. XANAX [Concomitant]
     Route: 048

REACTIONS (4)
  - CARPAL TUNNEL SYNDROME [None]
  - MUSCULAR WEAKNESS [None]
  - OEDEMA PERIPHERAL [None]
  - PERIPHERAL COLDNESS [None]
